FAERS Safety Report 7239479-9 (Version None)
Quarter: 2011Q1

REPORT INFORMATION
  Report Type: 
  Country: None (occurrence: None)
  Receive Date: 20110121
  Receipt Date: 20110119
  Transmission Date: 20110831
  Serious: Yes (Hospitalization)
  Sender: FDA-Public Use
  Company Number: US-ABBOTT-11P-163-0699300-00

PATIENT
  Sex: Female

DRUGS (1)
  1. BIAXIN [Suspect]
     Indication: NASOPHARYNGITIS
     Dates: start: 19980101, end: 19980101

REACTIONS (4)
  - STEVENS-JOHNSON SYNDROME [None]
  - CARDIAC ARREST [None]
  - ALOPECIA [None]
  - PYREXIA [None]
